FAERS Safety Report 8605521-3 (Version None)
Quarter: 2012Q3

REPORT INFORMATION
  Report Type: 
  Country: None (occurrence: None)
  Receive Date: 20120807
  Receipt Date: 20120801
  Transmission Date: 20120928
  Serious: Yes (Death, Hospitalization, Other)
  Sender: FDA-Public Use
  Company Number: GER/UKI/0025279

PATIENT
  Age: 47 Year
  Sex: Male
  Weight: 101 kg

DRUGS (4)
  1. MORPHINE [Concomitant]
  2. ZYPREXA [Suspect]
     Indication: SCHIZOPHRENIA
     Dosage: 10 MG AS NEEDED; A MAX OF 20 MG 2 -3 DAY, INTRAMUSCULAR
     Route: 030
  3. OLANZAPINE [Suspect]
     Indication: SCHIZOPHRENIA
     Dosage: 25 MG, ORAL 20 MG, ORAL
     Route: 048
     Dates: start: 20111130
  4. OLANZAPINE [Suspect]
     Indication: SCHIZOPHRENIA
     Dosage: 25 MG, ORAL 20 MG, ORAL
     Route: 048
     Dates: end: 20111128

REACTIONS (7)
  - MULTI-ORGAN FAILURE [None]
  - ISCHAEMIA [None]
  - OFF LABEL USE [None]
  - CONFUSIONAL STATE [None]
  - MEGACOLON [None]
  - SYSTEMIC CANDIDA [None]
  - INFARCTION [None]
